FAERS Safety Report 21998072 (Version 3)
Quarter: 2023Q1

REPORT INFORMATION
  Report Type: Spontaneous
  Country: US (occurrence: US)
  Receive Date: 20230216
  Receipt Date: 20230313
  Transmission Date: 20230418
  Serious: Yes (Other)
  Sender: FDA-Public Use
  Company Number: US-GLAXOSMITHKLINE-US2023AMR024392

PATIENT
  Age: 41 Year
  Sex: Female

DRUGS (1)
  1. ZEJULA [Suspect]
     Active Substance: NIRAPARIB
     Indication: Ovarian cancer
     Dosage: 300 MG, QD
     Route: 048
     Dates: start: 20230202, end: 20230222

REACTIONS (4)
  - Thrombocytopenia [Recovering/Resolving]
  - Abdominal discomfort [Not Recovered/Not Resolved]
  - Chromaturia [Not Recovered/Not Resolved]
  - Urine odour abnormal [Not Recovered/Not Resolved]

NARRATIVE: CASE EVENT DATE: 20230201
